FAERS Safety Report 13185282 (Version 1)
Quarter: 2017Q1

REPORT INFORMATION
  Report Type: Report from Study
  Country: CA (occurrence: CA)
  Receive Date: 20170203
  Receipt Date: 20170203
  Transmission Date: 20170428
  Serious: Yes (Other)
  Sender: FDA-Public Use
  Company Number: CA-JNJFOC-20170125764

PATIENT
  Sex: Female

DRUGS (1)
  1. STELARA [Suspect]
     Active Substance: USTEKINUMAB
     Indication: PSORIASIS
     Route: 058
     Dates: start: 20160902

REACTIONS (6)
  - Post viral fatigue syndrome [Unknown]
  - Sinus pain [Unknown]
  - Streptococcal infection [Unknown]
  - Chest pain [Unknown]
  - Influenza [Unknown]
  - Vertigo [Unknown]
